FAERS Safety Report 5998096-9 (Version None)
Quarter: 2008Q4

REPORT INFORMATION
  Report Type: 
  Country: None (occurrence: None)
  Receive Date: 20081213
  Receipt Date: 20080617
  Transmission Date: 20090506
  Serious: No
  Sender: FDA-Public Use
  Company Number: US-AMGEN-KDL288013

PATIENT
  Sex: Male

DRUGS (1)
  1. ENBREL [Suspect]
     Indication: PSORIASIS
     Route: 058

REACTIONS (6)
  - IMPAIRED HEALING [None]
  - INFECTION [None]
  - INJECTION SITE HAEMORRHAGE [None]
  - LACERATION [None]
  - LOCAL SWELLING [None]
  - PSORIASIS [None]
